FAERS Safety Report 4412323-0 (Version None)
Quarter: 2004Q3

REPORT INFORMATION
  Report Type: 
  Country: None (occurrence: None)
  Receive Date: 20040730
  Receipt Date: 20040721
  Transmission Date: 20050211
  Serious: Yes (Hospitalization)
  Sender: FDA-Public Use
  Company Number: NL-MERCK-0407NLD00021

PATIENT
  Age: 72 Year
  Sex: Male

DRUGS (3)
  1. CLARITHROMYCIN [Suspect]
     Indication: LOWER RESPIRATORY TRACT INFECTION
     Route: 048
     Dates: start: 20040314, end: 20040320
  2. COLCHICINE [Suspect]
     Indication: GOUT
     Route: 048
     Dates: start: 20030201, end: 20040405
  3. ZOCOR [Suspect]
     Indication: HYPERCHOLESTEROLAEMIA
     Route: 048
     Dates: start: 20040101, end: 20040405

REACTIONS (5)
  - DRUG INTERACTION [None]
  - HEPATIC ENZYME INCREASED [None]
  - LEUKOPENIA [None]
  - MYOPATHY [None]
  - THROMBOCYTOPENIA [None]
